FAERS Safety Report 9391733 (Version 1)
Quarter: 2013Q3

REPORT INFORMATION
  Report Type: Spontaneous
  Country: JP (occurrence: JP)
  Receive Date: 20130709
  Receipt Date: 20130709
  Transmission Date: 20140515
  Serious: Yes (Other)
  Sender: FDA-Public Use
  Company Number: JP-VIIV HEALTHCARE LIMITED-B0905652A

PATIENT
  Age: 54 Year
  Sex: Male

DRUGS (3)
  1. EPZICOM [Suspect]
     Indication: PRODUCT USED FOR UNKNOWN INDICATION
     Route: 048
  2. REYATAZ [Concomitant]
     Route: 048
  3. NORVIR [Concomitant]
     Route: 048

REACTIONS (1)
  - Renal impairment [Unknown]
